FAERS Safety Report 17658069 (Version 1)
Quarter: 2020Q2

REPORT INFORMATION
  Report Type: Spontaneous
  Country: US (occurrence: US)
  Receive Date: 20200411
  Receipt Date: 20200411
  Transmission Date: 20200713
  Serious: No
  Sender: FDA-Public Use
  Company Number: US-TEVA-2020-US-1219825

PATIENT
  Sex: Female
  Weight: 68.4 kg

DRUGS (1)
  1. PREGABALIN. [Suspect]
     Active Substance: PREGABALIN
     Route: 065

REACTIONS (7)
  - Decreased appetite [Unknown]
  - Depression [Unknown]
  - Confusional state [Unknown]
  - Feeling cold [Unknown]
  - Pruritus [Unknown]
  - Tremor [Unknown]
  - Dizziness [Unknown]
